FAERS Safety Report 4332147-2 (Version None)
Quarter: 2004Q2

REPORT INFORMATION
  Report Type: 
  Country: None (occurrence: None)
  Receive Date: 20040401
  Receipt Date: 20040401
  Transmission Date: 20050107
  Serious: Yes (Other)
  Sender: FDA-Public Use
  Company Number: None

PATIENT
  Sex: Female
  Weight: 54.3 kg

DRUGS (2)
  1. ESOMEPRAZOLE 40 MG [Suspect]
     Dosage: 40 MG DAILY ORAL
     Route: 048
     Dates: start: 20040121, end: 20040121
  2. METRONIDAZOLE [Concomitant]

REACTIONS (2)
  - PRURITUS [None]
  - RASH ERYTHEMATOUS [None]
